FAERS Safety Report 24559613 (Version 2)
Quarter: 2024Q4

REPORT INFORMATION
  Report Type: Spontaneous
  Country: US (occurrence: US)
  Receive Date: 20241029
  Receipt Date: 20241114
  Transmission Date: 20250115
  Serious: Yes (Death)
  Sender: TEVA
  Company Number: US-TEVA-VS-3258334

PATIENT
  Age: 39 Year
  Sex: Male

DRUGS (3)
  1. RIBAVIRIN [Suspect]
     Active Substance: RIBAVIRIN
     Indication: Immunodeficiency
     Route: 065
  2. NITAZOXANIDE [Suspect]
     Active Substance: NITAZOXANIDE
     Indication: Immunodeficiency
     Route: 065
  3. INFLIXIMAB [Concomitant]
     Active Substance: INFLIXIMAB
     Indication: Immunodeficiency common variable
     Route: 065

REACTIONS (1)
  - Drug ineffective [Fatal]
